FAERS Safety Report 9093309 (Version 1)
Quarter: 2013Q1

REPORT INFORMATION
  Report Type: Spontaneous
  Country: CH (occurrence: CH)
  Receive Date: 20130218
  Receipt Date: 20130218
  Transmission Date: 20140127
  Serious: Yes (Hospitalization, Other)
  Sender: FDA-Public Use
  Company Number: CH-009507513-1302CHE006880

PATIENT
  Age: 53 Year
  Sex: Female

DRUGS (3)
  1. REMERON [Suspect]
     Dosage: 10 DF, ONCE
     Route: 048
     Dates: start: 20130118, end: 20130118
  2. ZOLPIDEM TARTRATE [Suspect]
     Dosage: 56 DF, ONCE
     Route: 048
     Dates: start: 20130118, end: 20130118
  3. ESCITALOPRAM [Suspect]
     Dosage: 28 DF, ONCE
     Route: 048
     Dates: start: 20130118, end: 20130118

REACTIONS (7)
  - Fall [Recovered/Resolved]
  - Contusion [Unknown]
  - Laceration [Unknown]
  - Hyperreflexia [Recovered/Resolved]
  - Suicide attempt [Recovered/Resolved]
  - Confusional state [Recovered/Resolved]
  - Somnolence [Recovered/Resolved]
